FAERS Safety Report 17753805 (Version 1)
Quarter: 2020Q2

REPORT INFORMATION
  Report Type: Spontaneous
  Country: US (occurrence: US)
  Receive Date: 20200506
  Receipt Date: 20200506
  Transmission Date: 20200714
  Serious: No
  Sender: FDA-Public Use
  Company Number: US-ROCHE-2448514

PATIENT
  Sex: Male
  Weight: 81.72 kg

DRUGS (6)
  1. ESBRIET [Suspect]
     Active Substance: PIRFENIDONE
     Indication: ASTHMA
     Dosage: WITH MEALS
     Route: 048
     Dates: start: 201808
  2. ESBRIET [Suspect]
     Active Substance: PIRFENIDONE
     Indication: IDIOPATHIC PULMONARY FIBROSIS
  3. BREO ELLIPTA [Concomitant]
     Active Substance: FLUTICASONE FUROATE\VILANTEROL TRIFENATATE
     Indication: ASTHMA
     Route: 065
  4. FLUTICASONE. [Concomitant]
     Active Substance: FLUTICASONE
  5. SINGULAIR [Concomitant]
     Active Substance: MONTELUKAST SODIUM
     Indication: ASTHMA
     Route: 048
  6. MUCINEX [Concomitant]
     Active Substance: GUAIFENESIN
     Dosage: PRN ONCE A DAY OR TWICE A DAY
     Route: 048
     Dates: start: 201909

REACTIONS (2)
  - Dry mouth [Not Recovered/Not Resolved]
  - Dry mouth [Recovered/Resolved]
